FAERS Safety Report 5807522-7 (Version None)
Quarter: 2008Q3

REPORT INFORMATION
  Report Type: 
  Country: None (occurrence: None)
  Receive Date: 20080711
  Receipt Date: 20080704
  Transmission Date: 20090109
  Serious: Yes (Hospitalization)
  Sender: FDA-Public Use
  Company Number: TH-ABBOTT-08P-155-0461663-00

PATIENT
  Sex: Female
  Weight: 59 kg

DRUGS (3)
  1. RITONAVIR SOFT GELATIN CAPSULES [Suspect]
     Indication: HIV INFECTION
     Route: 048
  2. DARUNAVIR [Concomitant]
     Indication: HIV INFECTION
  3. COMBIGYL [Concomitant]
     Indication: HIV INFECTION
     Route: 048

REACTIONS (1)
  - RETINAL DETACHMENT [None]
